FAERS Safety Report 15111791 (Version 1)
Quarter: 2018Q3

REPORT INFORMATION
  Report Type: Spontaneous
  Country: FR (occurrence: FR)
  Receive Date: 20180705
  Receipt Date: 20180705
  Transmission Date: 20181010
  Serious: Yes (Hospitalization)
  Sender: FDA-Public Use
  Company Number: FR-BAUSCH-BL-2018-018290

PATIENT
  Age: 76 Year
  Sex: Male
  Weight: 75 kg

DRUGS (5)
  1. KARDEGIC [Concomitant]
     Active Substance: ASPIRIN DL-LYSINE
     Indication: PROPHYLAXIS
     Route: 048
     Dates: start: 20160705
  2. INOFER [Concomitant]
     Active Substance: FERROUS SUCCINATE\SUCCINIC ACID
     Indication: PROPHYLAXIS
     Route: 048
     Dates: start: 20160730
  3. TINZAPARIN [Concomitant]
     Active Substance: TINZAPARIN
     Indication: PHLEBITIS
     Route: 065
  4. DEXAMETHASONE. [Suspect]
     Active Substance: DEXAMETHASONE
     Indication: PLASMA CELL MYELOMA
     Dosage: 20 MG PER WEEK
     Route: 048
     Dates: start: 20160705, end: 20161108
  5. REVLIMID [Suspect]
     Active Substance: LENALIDOMIDE
     Indication: PLASMA CELL MYELOMA
     Dosage: 525 MG PER 28 DAYS
     Route: 048
     Dates: start: 20160705, end: 20161107

REACTIONS (3)
  - Deep vein thrombosis [Recovered/Resolved]
  - Neutropenia [Recovered/Resolved]
  - Anaemia [Recovered/Resolved]

NARRATIVE: CASE EVENT DATE: 20161107
